FAERS Safety Report 5454008-8 (Version None)
Quarter: 2007Q3

REPORT INFORMATION
  Report Type: 
  Country: None (occurrence: None)
  Receive Date: 20070917
  Receipt Date: 20070228
  Transmission Date: 20080115
  Serious: No
  Sender: FDA-Public Use
  Company Number: US-ASTRAZENECA-2006UW06953

PATIENT
  Sex: Male
  Weight: 116.8 kg

DRUGS (7)
  1. SEROQUEL [Suspect]
     Indication: PSYCHOTIC DISORDER
     Dosage: '200MG., 400MG.'
     Route: 048
     Dates: start: 20020709, end: 20041001
  2. CLOZARIL [Concomitant]
  3. HALDOL [Concomitant]
     Dates: start: 19920101, end: 19990101
  4. RISPERDAL [Concomitant]
  5. OLANZAPINE [Concomitant]
     Dates: start: 20010610, end: 20020709
  6. SERTRALINE [Concomitant]
     Indication: MENTAL DISORDER
     Dates: start: 20000101
  7. METHADONE HCL [Concomitant]
     Dates: start: 20050101

REACTIONS (5)
  - CARDIAC DISORDER [None]
  - GASTRIC DISORDER [None]
  - HYPERGLYCAEMIA [None]
  - INSULIN-REQUIRING TYPE II DIABETES MELLITUS [None]
  - OBESITY [None]
